FAERS Safety Report 10252636 (Version 3)
Quarter: 2015Q4

REPORT INFORMATION
  Report Type: Spontaneous
  Country: JP (occurrence: JP)
  Receive Date: 20140623
  Receipt Date: 20151021
  Transmission Date: 20160304
  Serious: Yes (Other)
  Sender: FDA-Public Use
  Company Number: JP-ABBVIE-14P-087-1238352-00

PATIENT
  Age: 52 Year
  Sex: Male

DRUGS (3)
  1. HUMIRA [Suspect]
     Active Substance: ADALIMUMAB
     Indication: PSORIASIS
     Route: 058
     Dates: start: 20131108, end: 20131108
  2. HUMIRA [Suspect]
     Active Substance: ADALIMUMAB
     Route: 058
     Dates: start: 20140305
  3. HUMIRA [Suspect]
     Active Substance: ADALIMUMAB
     Route: 058
     Dates: start: 20140718

REACTIONS (3)
  - Biliary adenoma [Recovered/Resolved]
  - Paradoxical drug reaction [Recovered/Resolved]
  - Pustular psoriasis [Recovered/Resolved]

NARRATIVE: CASE EVENT DATE: 20140312
